FAERS Safety Report 25617783 (Version 2)
Quarter: 2025Q3

REPORT INFORMATION
  Report Type: Report from Study
  Country: MY (occurrence: MY)
  Receive Date: 20250729
  Receipt Date: 20250811
  Transmission Date: 20251021
  Serious: Yes (Hospitalization, Other)
  Sender: NOVARTIS
  Company Number: MY-002147023-NVSC2024MY057841

PATIENT
  Age: 34 Year
  Sex: Female

DRUGS (13)
  1. SECUKINUMAB [Suspect]
     Active Substance: SECUKINUMAB
     Indication: Psoriatic arthropathy
     Route: 058
  2. ACETAMINOPHEN [Suspect]
     Active Substance: ACETAMINOPHEN
     Indication: Polyarthritis
     Route: 042
  3. ACETAMINOPHEN [Suspect]
     Active Substance: ACETAMINOPHEN
     Indication: Psoriatic arthropathy
  4. TWYNSTA [Concomitant]
     Active Substance: AMLODIPINE BESYLATE\TELMISARTAN
     Indication: Product used for unknown indication
     Route: 065
  5. Beprosalic [Concomitant]
     Indication: Product used for unknown indication
     Dosage: UNK, LOTION (SCALP) BID
     Route: 065
  6. CHLORPHENIRAMINE MALEATE [Concomitant]
     Active Substance: CHLORPHENIRAMINE MALEATE
     Indication: Product used for unknown indication
     Route: 065
  7. CHLORPHENIRAMINE MALEATE [Concomitant]
     Active Substance: CHLORPHENIRAMINE MALEATE
     Dosage: 10 G G STAT, TID
     Route: 042
  8. BILASTINE [Concomitant]
     Active Substance: BILASTINE
     Indication: Product used for unknown indication
     Dosage: 20 MG, BID (20MG BD X 2 WEEKS)
     Route: 065
  9. CEFUROXIME [Concomitant]
     Active Substance: CEFUROXIME
     Indication: Product used for unknown indication
     Dosage: 500 MG, BID (500MG BD X 3DAYS)
     Route: 065
  10. MOMETASONE FUROATE [Concomitant]
     Active Substance: MOMETASONE FUROATE
     Indication: Product used for unknown indication
     Dosage: UNK, BID
     Route: 065
  11. CEFUROXIME [Concomitant]
     Active Substance: CEFUROXIME
     Indication: Product used for unknown indication
     Route: 042
  12. CEFUROXIME [Concomitant]
     Active Substance: CEFUROXIME
     Route: 042
  13. MICARDIS [Concomitant]
     Active Substance: TELMISARTAN
     Indication: Hypertension
     Route: 065

REACTIONS (15)
  - Pruritus [Unknown]
  - Psoriatic arthropathy [Unknown]
  - Polyarthritis [Unknown]
  - Arthralgia [Unknown]
  - Psoriasis [Unknown]
  - Pain [Unknown]
  - Mean cell volume decreased [Unknown]
  - Mean cell haemoglobin decreased [Unknown]
  - Blood cholesterol increased [Unknown]
  - Non-high-density lipoprotein cholesterol increased [Unknown]
  - Gamma-glutamyltransferase increased [Unknown]
  - Infection [Unknown]
  - Drug ineffective [Unknown]
  - Blood triglycerides increased [Unknown]
  - Synovitis [Unknown]

NARRATIVE: CASE EVENT DATE: 20230311
